FAERS Safety Report 4524222-4 (Version None)
Quarter: 2004Q4

REPORT INFORMATION
  Report Type: 
  Country: None (occurrence: None)
  Receive Date: 20041209
  Receipt Date: 20041130
  Transmission Date: 20050328
  Serious: Yes (Hospitalization, Congenital Anomaly)
  Sender: FDA-Public Use
  Company Number: 2004-11-1660

PATIENT
  Age: 1 Day
  Weight: 2.8 kg

DRUGS (6)
  1. AERIUS (DESLORATADINE) 'LIKE CLARINEX' [Suspect]
     Indication: ASTHMA
     Dosage: ORAL
     Route: 048
     Dates: end: 20041022
  2. SERETIDE (SALMETEROL XINAFOATE/FLUTICASONE PROPIONAT [Suspect]
     Indication: ASTHMA
     Dosage: 2 DOSES QD ORAL
     Route: 048
     Dates: end: 20041022
  3. BERODUAL [Suspect]
     Indication: ASTHMA
     Dosage: TID ORAL
     Route: 048
     Dates: end: 20041022
  4. ZADITEN [Suspect]
     Indication: ASTHMA
     Dosage: 2 MG QD ORAL
     Route: 048
     Dates: end: 20041022
  5. FLIXONASE (FLUTICASONE PROPIONATE) NASAL AEROSOL [Suspect]
     Indication: ASTHMA
     Dosage: 1 PUFF QD IN
     Route: 055
     Dates: end: 20041022
  6. TELFAST (FEXOFENADINE) [Suspect]
     Indication: ASTHMA
     Dosage: ORAL
     Route: 048
     Dates: end: 20041022

REACTIONS (7)
  - COARCTATION OF THE AORTA [None]
  - CONGENITAL VENTRICULAR SEPTAL DEFECT [None]
  - DRUG EXPOSURE DURING PREGNANCY [None]
  - GASTROINTESTINAL MALFORMATION [None]
  - HEART DISEASE CONGENITAL [None]
  - NEONATAL DISORDER [None]
  - OESOPHAGEAL ATRESIA [None]
